FAERS Safety Report 25685304 (Version 1)
Quarter: 2025Q3

REPORT INFORMATION
  Report Type: Spontaneous
  Country: BA (occurrence: BA)
  Receive Date: 20250815
  Receipt Date: 20250815
  Transmission Date: 20251020
  Serious: Yes (Death, Life-Threatening, Hospitalization)
  Sender: MACLEODS
  Company Number: BA-MLMSERVICE-20250728-PI593030-00060-1

PATIENT

DRUGS (10)
  1. DOXYCYCLINE [Suspect]
     Active Substance: DOXYCYCLINE
     Indication: Pneumonia
     Dosage: 1400 MG FOR  7 DAYS
     Route: 048
     Dates: start: 2020, end: 2020
  2. AZITHROMYCIN [Suspect]
     Active Substance: AZITHROMYCIN
     Indication: Pneumonia
     Dosage: 1500 MG FOR 3 DAYS
     Route: 048
     Dates: start: 2020, end: 2020
  3. DEXAMETHASONE [Suspect]
     Active Substance: DEXAMETHASONE
     Indication: Pneumonia
     Dosage: 60 MG FOR 10 DAYS
     Route: 042
     Dates: start: 2020, end: 2020
  4. ENOXAPARIN [Concomitant]
     Active Substance: ENOXAPARIN
     Dosage: FOR 10 DAYS
     Route: 058
     Dates: start: 2020, end: 2020
  5. ENOXAPARIN [Concomitant]
     Active Substance: ENOXAPARIN
     Dosage: FOR 7 DAYS
     Route: 058
     Dates: start: 2020
  6. SPIRONOLACTONE [Concomitant]
     Active Substance: SPIRONOLACTONE
     Route: 065
  7. SPIRONOLACTONE [Concomitant]
     Active Substance: SPIRONOLACTONE
  8. FUROSEMIDE [Concomitant]
     Active Substance: FUROSEMIDE
     Route: 065
  9. FUROSEMIDE [Concomitant]
     Active Substance: FUROSEMIDE
  10. ASPIRIN [Concomitant]
     Active Substance: ASPIRIN
     Route: 048
     Dates: start: 2020

REACTIONS (8)
  - Hepatic failure [Fatal]
  - Shock haemorrhagic [Fatal]
  - Oesophageal varices haemorrhage [Fatal]
  - Ascites [Fatal]
  - Hepatorenal syndrome [Fatal]
  - Malnutrition [Fatal]
  - Multiple organ dysfunction syndrome [Fatal]
  - Cognitive disorder [Fatal]

NARRATIVE: CASE EVENT DATE: 20210101
